FAERS Safety Report 6933671-6 (Version None)
Quarter: 2010Q3

REPORT INFORMATION
  Report Type: 
  Country: None (occurrence: None)
  Receive Date: 20100820
  Receipt Date: 20100812
  Transmission Date: 20110219
  Serious: Yes (Other)
  Sender: FDA-Public Use
  Company Number: US-PERRIGO-10US012183

PATIENT
  Age: 1 Month
  Sex: Female

DRUGS (1)
  1. DIPHENHYDRAMINE HCL [Suspect]
     Indication: INSOMNIA
     Dosage: UNK, QD
     Route: 048
     Dates: start: 20010101

REACTIONS (2)
  - OFF LABEL USE [None]
  - TYPE 1 DIABETES MELLITUS [None]
